FAERS Safety Report 4882293-X (Version None)
Quarter: 2006Q1

REPORT INFORMATION
  Report Type: 
  Country: None (occurrence: None)
  Receive Date: 20060117
  Receipt Date: 20051221
  Transmission Date: 20060701
  Serious: Yes (Disabling)
  Sender: FDA-Public Use
  Company Number: FR-BRISTOL-MYERS SQUIBB COMPANY-13248174

PATIENT
  Sex: Male

DRUGS (1)
  1. VASTEN [Suspect]
     Dosage: 20MG DAILY FROM JAN-2004 TO DEC-2004 40MG DAILY INITIATED JAN-2005
     Route: 048
     Dates: start: 20040101, end: 20050101

REACTIONS (1)
  - AZOOSPERMIA [None]
